FAERS Safety Report 8423102-1 (Version None)
Quarter: 2012Q2

REPORT INFORMATION
  Report Type: 
  Country: None (occurrence: None)
  Receive Date: 20120608
  Receipt Date: 20120531
  Transmission Date: 20120825
  Serious: Yes (Other)
  Sender: FDA-Public Use
  Company Number: US-INCYTE CORPORATION-2012IN000955

PATIENT
  Sex: Female

DRUGS (11)
  1. JAKAFI [Suspect]
     Dosage: 5 MG, TID
     Route: 048
     Dates: end: 20120401
  2. ALLEGRA [Concomitant]
     Dosage: UNK, QD
     Route: 048
  3. JAKAFI [Suspect]
     Indication: MYELOFIBROSIS
     Dosage: 5 MG, BID
     Route: 048
     Dates: start: 20120101
  4. PROZAC [Concomitant]
     Dosage: 40 MG, QD
     Route: 048
  5. OMEPRAZOLE [Concomitant]
     Dosage: 40 MG, QD
     Route: 048
  6. LORAZEPAM [Concomitant]
     Dosage: 0.5 MG, PRN
     Route: 048
  7. MAGNESIUM [Concomitant]
     Indication: SUPPLEMENTATION THERAPY
  8. ASPIRIN [Concomitant]
     Dosage: 81 MG, QD
     Route: 048
  9. CALCIUM WITH VITAMIN D [Concomitant]
     Indication: SUPPLEMENTATION THERAPY
  10. MIDRIN [Concomitant]
     Indication: MIGRAINE
     Dosage: UNK, PRN
     Route: 048
  11. NAPROXEN (ALEVE) [Concomitant]
     Dosage: 1 TABLET QD
     Route: 048

REACTIONS (2)
  - OPTIC NERVE INJURY [None]
  - OPTIC ISCHAEMIC NEUROPATHY [None]
